FAERS Safety Report 24563333 (Version 2)
Quarter: 2024Q4

REPORT INFORMATION
  Report Type: Spontaneous
  Country: AU (occurrence: None)
  Receive Date: 20241030
  Receipt Date: 20241112
  Transmission Date: 20250114
  Serious: Yes (Hospitalization, Other)
  Sender: MDD OPERATIONS
  Company Number: AU-MDD US Operations-MDD202410-004080

PATIENT
  Age: 83 Year
  Sex: Female

DRUGS (11)
  1. APOMORPHINE HYDROCHLORIDE [Suspect]
     Active Substance: APOMORPHINE HYDROCHLORIDE
     Indication: Parkinson^s disease
     Dosage: NOT PROVIDED
     Route: 058
     Dates: start: 201802
  2. PRAMIPEXOLE [Concomitant]
     Active Substance: PRAMIPEXOLE\PRAMIPEXOLE DIHYDROCHLORIDE
     Dosage: NOT PROVIDED
  3. METOPROLOL [Concomitant]
     Active Substance: METOPROLOL
     Dosage: NOT PROVIDED
  4. EPLERENONE [Concomitant]
     Active Substance: EPLERENONE
     Dosage: NOT PROVIDED
  5. APIXABAN [Concomitant]
     Active Substance: APIXABAN
     Dosage: NOT PROVIDED
  6. FUROSEMIDE [Concomitant]
     Active Substance: FUROSEMIDE
     Dosage: NOT PROVIDED
  7. ATORVASTATIN [Concomitant]
     Active Substance: ATORVASTATIN
     Dosage: NOT PROVIDED
  8. CANDESARTAN [Concomitant]
     Active Substance: CANDESARTAN
     Dosage: NOT PROVIDED
  9. BENSERAZIDE HYDROCHLORIDE\LEVODOPA [Concomitant]
     Active Substance: BENSERAZIDE HYDROCHLORIDE\LEVODOPA
     Dosage: NOT PROVIDED
  10. MOTILIUM [Concomitant]
     Active Substance: DOMPERIDONE
     Dosage: NOT PROVIDED
  11. DIGOXIN [Concomitant]
     Active Substance: DIGOXIN
     Dosage: NOT PROVIDED

REACTIONS (1)
  - Pulmonary oedema [Unknown]
